FAERS Safety Report 24458377 (Version 1)
Quarter: 2024Q4

REPORT INFORMATION
  Report Type: Spontaneous
  Country: US (occurrence: US)
  Receive Date: 20241018
  Receipt Date: 20241018
  Transmission Date: 20250115
  Serious: No
  Sender: ROCHE
  Company Number: US-ROCHE-3518284

PATIENT
  Sex: Male

DRUGS (6)
  1. RITUXIMAB [Suspect]
     Active Substance: RITUXIMAB
     Indication: Congenital musculoskeletal disorder
     Dosage: TOTAL 4 DOSES? FREQUENCY TEXT:WEEKLY
     Route: 042
  2. CELLCEPT [Suspect]
     Active Substance: MYCOPHENOLATE MOFETIL
     Indication: Congenital musculoskeletal disorder
     Route: 065
  3. SIROLIMUS [Suspect]
     Active Substance: SIROLIMUS
     Indication: Congenital musculoskeletal disorder
     Dosage: LATER REDUCED 1MG/M2
     Route: 065
  4. BORTEZOMIB [Suspect]
     Active Substance: BORTEZOMIB
     Indication: Congenital musculoskeletal disorder
     Route: 058
  5. PREDNISONE [Suspect]
     Active Substance: PREDNISONE
     Indication: Congenital musculoskeletal disorder
     Dosage: 0.25 TO 2 MG/KG/DAY
     Route: 065
  6. RUXOLITINIB [Concomitant]
     Active Substance: RUXOLITINIB

REACTIONS (2)
  - Treatment failure [Unknown]
  - COVID-19 [Unknown]
